FAERS Safety Report 9681346 (Version 1)
Quarter: 2013Q4

REPORT INFORMATION
  Report Type: Spontaneous
  Country: US (occurrence: None)
  Receive Date: 20131108
  Receipt Date: 20131108
  Transmission Date: 20140711
  Serious: No
  Sender: FDA-Public Use
  Company Number: None

PATIENT
  Age: 64 Year
  Sex: Female
  Weight: 70.31 kg

DRUGS (1)
  1. MEDICAL OXYGEN [Suspect]
     Indication: SARCOIDOSIS
     Dosage: FLOW RATE 3 AT BEDTIME INHALATION
     Route: 055
     Dates: start: 20131106

REACTIONS (4)
  - Dysgeusia [None]
  - Headache [None]
  - Nausea [None]
  - Product substitution issue [None]
